FAERS Safety Report 25199145 (Version 1)
Quarter: 2025Q2

REPORT INFORMATION
  Report Type: Report from Study
  Country: US (occurrence: US)
  Receive Date: 20250415
  Receipt Date: 20250415
  Transmission Date: 20250717
  Serious: Yes (Other)
  Sender: ABBVIE
  Company Number: US-ABBVIE-6221586

PATIENT
  Age: 69 Year

DRUGS (1)
  1. RISANKIZUMAB [Suspect]
     Active Substance: RISANKIZUMAB
     Indication: Psoriasis
     Route: 058

REACTIONS (4)
  - Hip arthroplasty [Unknown]
  - Peripheral swelling [Unknown]
  - Thrombosis [Recovering/Resolving]
  - Scar [Unknown]

NARRATIVE: CASE EVENT DATE: 20240901
